FAERS Safety Report 6856817-7 (Version None)
Quarter: 2010Q3

REPORT INFORMATION
  Report Type: 
  Country: None (occurrence: None)
  Receive Date: 20100719
  Receipt Date: 20100714
  Transmission Date: 20110219
  Serious: Yes (Hospitalization)
  Sender: FDA-Public Use
  Company Number: ES-AMGEN-UK352421

PATIENT
  Sex: Male

DRUGS (8)
  1. PANITUMUMAB [Suspect]
     Indication: SQUAMOUS CELL CARCINOMA
     Route: 042
     Dates: start: 20090513, end: 20090608
  2. RADIATION THERAPY [Concomitant]
     Dates: start: 20090513, end: 20090625
  3. DURAGESIC-100 [Concomitant]
     Route: 062
     Dates: start: 20090603
  4. DACORTIN [Concomitant]
     Route: 048
     Dates: start: 20090603, end: 20090706
  5. MYCOSTATIN [Concomitant]
     Route: 002
     Dates: start: 20090616, end: 20090706
  6. DICLOFENAC [Concomitant]
     Route: 048
     Dates: start: 20090616, end: 20090706
  7. OMEPRAZOLE [Concomitant]
     Route: 048
     Dates: start: 20090616, end: 20090706
  8. ACETYLCYSTEINE [Concomitant]
     Route: 048
     Dates: start: 20100616, end: 20100706

REACTIONS (11)
  - BLOOD SODIUM DECREASED [None]
  - DEHYDRATION [None]
  - DIARRHOEA [None]
  - HEPATIC FUNCTION ABNORMAL [None]
  - HYPERBILIRUBINAEMIA [None]
  - MUCOSAL INFLAMMATION [None]
  - NAUSEA [None]
  - RENAL FAILURE [None]
  - STOMATITIS [None]
  - VOMITING [None]
  - WHITE BLOOD CELL COUNT DECREASED [None]
